FAERS Safety Report 6424841-4 (Version None)
Quarter: 2009Q4

REPORT INFORMATION
  Report Type: 
  Country: None (occurrence: None)
  Receive Date: 20091103
  Receipt Date: 20091030
  Transmission Date: 20100525
  Serious: Yes (Death)
  Sender: FDA-Public Use
  Company Number: PHHY2009FR47556

PATIENT
  Sex: Female

DRUGS (2)
  1. FEMARA [Suspect]
     Indication: BREAST CANCER
  2. HERCEPTIN [Suspect]
     Dosage: UNK
     Dates: start: 20090914

REACTIONS (5)
  - ACUTE PULMONARY OEDEMA [None]
  - ATRIAL FIBRILLATION [None]
  - BRONCHOPNEUMOPATHY [None]
  - LUNG DISORDER [None]
  - PYREXIA [None]
